FAERS Safety Report 13563113 (Version 1)
Quarter: 2017Q2

REPORT INFORMATION
  Report Type: Spontaneous
  Country: US (occurrence: US)
  Receive Date: 20170518
  Receipt Date: 20170518
  Transmission Date: 20170830
  Serious: Yes (Hospitalization)
  Sender: FDA-Public Use
  Company Number: None

PATIENT
  Age: 67 Year
  Sex: Male

DRUGS (2)
  1. FLUCONAZOLE. [Suspect]
     Active Substance: FLUCONAZOLE
     Indication: OSTEOMYELITIS
     Route: 048
     Dates: start: 20170510
  2. METHADONE [Suspect]
     Active Substance: METHADONE HYDROCHLORIDE
     Indication: PAIN
     Route: 048
     Dates: start: 20100921, end: 20170515

REACTIONS (10)
  - Hypervolaemia [None]
  - Osteomyelitis [None]
  - Somnolence [None]
  - Respiratory acidosis [None]
  - Hypercapnia [None]
  - Drug interaction [None]
  - Mental status changes [None]
  - Pain [None]
  - Wound infection [None]
  - Acidosis [None]

NARRATIVE: CASE EVENT DATE: 20170515
